FAERS Safety Report 20207869 (Version 3)
Quarter: 2024Q1

REPORT INFORMATION
  Report Type: Spontaneous
  Country: CA (occurrence: CA)
  Receive Date: 20211220
  Receipt Date: 20240118
  Transmission Date: 20240410
  Serious: Yes (Other)
  Sender: FDA-Public Use
  Company Number: CA-OTSUKA-2021_043393

PATIENT
  Sex: Female

DRUGS (20)
  1. ARIPIPRAZOLE [Suspect]
     Active Substance: ARIPIPRAZOLE
     Indication: Product used for unknown indication
     Dosage: UNK
     Route: 065
  2. ACETAMINOPHEN [Suspect]
     Active Substance: ACETAMINOPHEN
     Indication: Pyrexia
     Dosage: 2.0 DOSAGE FORMS 2 EVERY 1 DAYS
     Route: 065
  3. ACETAMINOPHEN [Suspect]
     Active Substance: ACETAMINOPHEN
     Indication: Pain
     Dosage: UNK
     Route: 065
  4. AMLODIPINE BESYLATE [Suspect]
     Active Substance: AMLODIPINE BESYLATE
     Indication: Product used for unknown indication
     Dosage: 1 DF, QD
     Route: 065
  5. CLOTRIMAZOLE [Suspect]
     Active Substance: CLOTRIMAZOLE
     Indication: Rash
     Dosage: UNK
     Route: 065
  6. ALUMINUM HYDROXIDE [Suspect]
     Active Substance: ALUMINUM HYDROXIDE
     Indication: Abdominal discomfort
     Dosage: 30 ML
     Route: 048
  7. CLOZAPINE [Suspect]
     Active Substance: CLOZAPINE
     Indication: Product used for unknown indication
     Dosage: 3 DF, QD
     Route: 065
  8. CLOZAPINE [Suspect]
     Active Substance: CLOZAPINE
     Dosage: 1 DF, QD
     Route: 065
  9. DIVIGEL [Suspect]
     Active Substance: ESTRADIOL
     Indication: Product used for unknown indication
     Dosage: UNK
     Route: 065
  10. FLUMIST [Suspect]
     Active Substance: INFLUENZA A VIRUS A/CALIFORNIA/7/2009 (H1N1) LIVE(ATTENUATED) ANTIGEN\INFLUENZA A VIRUS A/PERTH/16/2
     Indication: Product used for unknown indication
     Dosage: 0.2 ML
     Route: 065
  11. LEVOTHYROXINE SODIUM [Suspect]
     Active Substance: LEVOTHYROXINE SODIUM
     Indication: Product used for unknown indication
     Dosage: 1 DF
     Route: 065
  12. OLANZAPINE [Suspect]
     Active Substance: OLANZAPINE
     Indication: Mood altered
     Dosage: UNK
     Route: 065
  13. RANITIDINE HYDROCHLORIDE [Suspect]
     Active Substance: RANITIDINE HYDROCHLORIDE
     Indication: Product used for unknown indication
     Dosage: 150.0 MG, BID
     Route: 065
  14. VALPROIC ACID [Suspect]
     Active Substance: VALPROIC ACID
     Indication: Product used for unknown indication
     Dosage: UNK
     Route: 065
  15. ZOPICLONE [Suspect]
     Active Substance: ZOPICLONE
     Indication: Insomnia
     Dosage: UNK
     Route: 065
  16. ESTRADIOL [Suspect]
     Active Substance: ESTRADIOL
     Indication: Product used for unknown indication
     Dosage: UNK
     Route: 065
  17. INFLUENZA VIRUS VACCINE TRIVALENT TYPE A+B [Suspect]
     Active Substance: INFLUENZA VIRUS VACCINE TRIVALENT TYPE A+B
     Indication: Immunisation
     Dosage: 0.2 ML, TOTAL
     Route: 065
  18. VITAMIN D3 [Suspect]
     Active Substance: CHOLECALCIFEROL
     Indication: Product used for unknown indication
     Dosage: UNK
     Route: 065
  19. ACETAMINOPHEN [Suspect]
     Active Substance: ACETAMINOPHEN
     Indication: Pyrexia
     Dosage: 2 DF, BID
     Route: 065
  20. ACETAMINOPHEN [Suspect]
     Active Substance: ACETAMINOPHEN
     Indication: Pain

REACTIONS (5)
  - Drug level increased [Unknown]
  - Schizoaffective disorder [Unknown]
  - Electrocardiogram QT prolonged [Unknown]
  - Drug interaction [Unknown]
  - Product use issue [Unknown]
